FAERS Safety Report 7484800-X (Version None)
Quarter: 2011Q2

REPORT INFORMATION
  Report Type: 
  Country: None (occurrence: None)
  Receive Date: 20110517
  Receipt Date: 20110513
  Transmission Date: 20111010
  Serious: Yes (Other)
  Sender: FDA-Public Use
  Company Number: A0927298A

PATIENT
  Age: 52 Year
  Sex: Male

DRUGS (1)
  1. ALLI [Suspect]
     Indication: WEIGHT LOSS DIET
     Route: 048

REACTIONS (4)
  - DRUG ADMINISTRATION ERROR [None]
  - HEPATIC ENZYME INCREASED [None]
  - LIVER INJURY [None]
  - DRUG INEFFECTIVE [None]
